FAERS Safety Report 5699897-7 (Version None)
Quarter: 2008Q2

REPORT INFORMATION
  Report Type: 
  Country: None (occurrence: None)
  Receive Date: 20080410
  Receipt Date: 20080402
  Transmission Date: 20081010
  Serious: Yes (Hospitalization)
  Sender: FDA-Public Use
  Company Number: GB-MERCK-0804GBR00019

PATIENT
  Age: 50 Year
  Sex: Male
  Weight: 74 kg

DRUGS (18)
  1. ZOCOR [Suspect]
     Indication: BLOOD CHOLESTEROL INCREASED
     Route: 048
     Dates: start: 20070101, end: 20080312
  2. ZOCOR [Suspect]
     Route: 048
     Dates: start: 20060101, end: 20070101
  3. ZOCOR [Suspect]
     Route: 048
     Dates: start: 19980101, end: 20060101
  4. ZOCOR [Suspect]
     Indication: MYOCARDIAL INFARCTION
     Route: 048
     Dates: start: 20070101, end: 20080312
  5. ZOCOR [Suspect]
     Route: 048
     Dates: start: 20060101, end: 20070101
  6. ZOCOR [Suspect]
     Route: 048
     Dates: start: 19980101, end: 20060101
  7. AMIODARONE [Suspect]
     Route: 065
     Dates: start: 20080205
  8. ASPIRIN [Concomitant]
     Route: 065
  9. BISOPROLOL [Concomitant]
     Route: 065
  10. FUROSEMIDE [Concomitant]
     Route: 065
  11. LACTULOSE [Concomitant]
     Route: 065
  12. ACETAMINOPHEN [Concomitant]
     Route: 065
  13. RAMIPRIL [Concomitant]
     Route: 065
  14. SENNA [Concomitant]
     Route: 065
  15. SPIRONOLACTONE [Concomitant]
     Route: 065
  16. THIAMINE [Concomitant]
     Route: 065
  17. VITAMIN B (UNSPECIFIED) [Concomitant]
     Route: 065
  18. WARFARIN [Concomitant]
     Route: 065

REACTIONS (2)
  - DRUG INTERACTION [None]
  - MUSCULAR WEAKNESS [None]
